FAERS Safety Report 10444069 (Version 3)
Quarter: 2014Q4

REPORT INFORMATION
  Report Type: Spontaneous
  Country: US (occurrence: None)
  Receive Date: 20140908
  Receipt Date: 20141024
  Transmission Date: 20150528
  Serious: Yes (Other)
  Sender: FDA-Public Use
  Company Number: ADR-2014-01569

PATIENT
  Age: 54 Year
  Sex: Male

DRUGS (9)
  1. FLOMAX [Suspect]
     Active Substance: TAMSULOSIN HYDROCHLORIDE
  2. BACLOFEN. [Suspect]
     Active Substance: BACLOFEN
     Indication: MUSCLE SPASTICITY
     Dosage: 56.17 MCG/DAY
  3. CLONIDINE. [Suspect]
     Active Substance: CLONIDINE
  4. COPAXONE [Suspect]
     Active Substance: GLATIRAMER ACETATE
     Route: 058
  5. BUPIVACAINE [Suspect]
     Active Substance: BUPIVACAINE
     Dosage: 5.6 MG/ML (1.4297) MG/DAY)
  6. LEXAPRO [Suspect]
     Active Substance: ESCITALOPRAM OXALATE
     Dosage: DAY
  7. BACLOFEN. [Suspect]
     Active Substance: BACLOFEN
  8. DILAUDID [Suspect]
     Active Substance: HYDROMORPHONE HYDROCHLORIDE
     Dosage: 0.9 MG/ML (0.22977 MG/DAY
  9. VICODIN [Suspect]
     Active Substance: ACETAMINOPHEN\HYDROCODONE BITARTRATE

REACTIONS (7)
  - Blood pressure diastolic increased [None]
  - Hot flush [None]
  - Drug withdrawal syndrome [None]
  - Pain [None]
  - Muscle spasticity [None]
  - Device power source issue [None]
  - Muscle spasms [None]

NARRATIVE: CASE EVENT DATE: 20140823
